FAERS Safety Report 17567644 (Version 1)
Quarter: 2020Q1

REPORT INFORMATION
  Report Type: Spontaneous
  Country: PR (occurrence: PR)
  Receive Date: 20200320
  Receipt Date: 20200320
  Transmission Date: 20200409
  Serious: Yes (Other)
  Sender: FDA-Public Use
  Company Number: PR-AMERICAN REGENT INC-2020000697

PATIENT
  Age: 50 Year
  Sex: Female

DRUGS (2)
  1. INJECTAFER [Suspect]
     Active Substance: FERRIC CARBOXYMALTOSE
     Indication: PRODUCT USED FOR UNKNOWN INDICATION
     Dosage: 750 MILLIGRAM, SINGLE
     Route: 042
     Dates: start: 20200205, end: 20200205
  2. INJECTAFER [Suspect]
     Active Substance: FERRIC CARBOXYMALTOSE
     Dosage: 750 MILLIGRAM, SINGLE
     Route: 042
     Dates: start: 20200212, end: 20200212

REACTIONS (3)
  - Serum ferritin increased [Not Recovered/Not Resolved]
  - Red cell distribution width increased [Unknown]
  - Reticulocyte count increased [Not Recovered/Not Resolved]

NARRATIVE: CASE EVENT DATE: 20200309
